FAERS Safety Report 4433339-4 (Version None)
Quarter: 2004Q3

REPORT INFORMATION
  Report Type: 
  Country: None (occurrence: None)
  Receive Date: 20040824
  Receipt Date: 20040813
  Transmission Date: 20050211
  Serious: Yes (Hospitalization)
  Sender: FDA-Public Use
  Company Number: 2004043738

PATIENT
  Age: 27 Year
  Sex: Female

DRUGS (3)
  1. VIRACEPT [Suspect]
     Indication: HIV INFECTION
     Dosage: 2250 MG (250 MG, 9 N 1 D), ORAL
     Route: 048
     Dates: start: 20040130, end: 20040701
  2. DIDANOSINE             (DIDANOSINE) [Suspect]
     Indication: HIV INFECTION
     Dosage: 40 MG ( 1 IN 1 D), ORAL
     Route: 048
     Dates: start: 20040130, end: 20040701
  3. ZIDOVUDINE [Suspect]
     Indication: HIV INFECTION
     Dosage: 600 MG (300 MG, 1 IN 1 D), ORAL
     Route: 048
     Dates: start: 20040120

REACTIONS (8)
  - ANAEMIA [None]
  - ANOREXIA [None]
  - BLOOD HIV RNA INCREASED [None]
  - CYTOLYTIC HEPATITIS [None]
  - GASTROINTESTINAL DISORDER [None]
  - NAUSEA [None]
  - PREGNANCY [None]
  - PREMATURE LABOUR [None]
